FAERS Safety Report 4942674-2 (Version None)
Quarter: 2006Q1

REPORT INFORMATION
  Report Type: 
  Country: None (occurrence: None)
  Receive Date: 20060216
  Receipt Date: 20060208
  Transmission Date: 20060701
  Serious: Yes (Life-Threatening)
  Sender: FDA-Public Use
  Company Number: 200610108BYL

PATIENT
  Age: 7 Year
  Sex: Male
  Weight: 20.9 kg

DRUGS (2)
  1. GAMIMUNE N 5% [Suspect]
     Indication: KAWASAKI'S DISEASE
     Dosage: INTRAVENOUS
     Route: 042
     Dates: start: 20060121
  2. ASPIRIN [Concomitant]

REACTIONS (2)
  - ANAPHYLACTIC REACTION [None]
  - BODY TEMPERATURE DECREASED [None]
